FAERS Safety Report 14500078 (Version 1)
Quarter: 2018Q1

REPORT INFORMATION
  Report Type: Not Available
  Country: US (occurrence: US)
  Receive Date: 20180207
  Receipt Date: 20180207
  Transmission Date: 20180509
  Serious: No
  Sender: FDA-Public Use
  Company Number: US-FOUNDATIONCONSUMERHC-2017-US-014140

PATIENT
  Age: 16 Year
  Sex: Female
  Weight: 52.16 kg

DRUGS (2)
  1. IBUPROFEN. [Concomitant]
     Active Substance: IBUPROFEN
     Dates: start: 20171029
  2. PLAN B ONE-STEP [Suspect]
     Active Substance: LEVONORGESTREL
     Dosage: 1 TABLET X1 DOSE
     Route: 048
     Dates: start: 20171009, end: 20171009

REACTIONS (9)
  - Insomnia [Unknown]
  - Menstruation delayed [Recovered/Resolved]
  - Prescription drug used without a prescription [Unknown]
  - Vaginal haemorrhage [Recovered/Resolved]
  - Nausea [Unknown]
  - Fatigue [Unknown]
  - Dysmenorrhoea [Unknown]
  - Vaginal discharge [Unknown]
  - Intentional product misuse [Unknown]

NARRATIVE: CASE EVENT DATE: 201710
